FAERS Safety Report 20544427 (Version 2)
Quarter: 2022Q4

REPORT INFORMATION
  Report Type: Report from Study
  Country: CA (occurrence: CA)
  Receive Date: 20220303
  Receipt Date: 20221118
  Transmission Date: 20230113
  Serious: Yes (Other)
  Sender: FDA-Public Use
  Company Number: CA-CELLTRION INC.-2022CA002393

PATIENT

DRUGS (2)
  1. TRUXIMA [Suspect]
     Active Substance: RITUXIMAB-ABBS
     Indication: Rheumatoid arthritis
     Dosage: 1000 MG INFUSION #6
     Route: 042
     Dates: start: 20200924
  2. PREDNISONE [Concomitant]
     Active Substance: PREDNISONE

REACTIONS (3)
  - COVID-19 [Unknown]
  - Exposure to SARS-CoV-2 [Unknown]
  - Intentional dose omission [Unknown]
